FAERS Safety Report 9458192 (Version 1)
Quarter: 2013Q3

REPORT INFORMATION
  Report Type: Spontaneous
  Country: US (occurrence: US)
  Receive Date: 20130814
  Receipt Date: 20130814
  Transmission Date: 20140515
  Serious: Yes (Other)
  Sender: FDA-Public Use
  Company Number: US-PURDUE-USA-2013-0103252

PATIENT
  Age: 78 Year
  Sex: Female
  Weight: 58.96 kg

DRUGS (3)
  1. BETADINE SURGICAL SCRUB 7.5% [Suspect]
     Indication: SURGERY
     Dosage: UNKNOWN
  2. DILTIAZEM                          /00489702/ [Concomitant]
     Indication: SUPRAVENTRICULAR TACHYCARDIA
     Dosage: 300 MG, UNK
  3. ADVAIR [Concomitant]
     Indication: CHRONIC OBSTRUCTIVE PULMONARY DISEASE

REACTIONS (12)
  - Anaphylactic reaction [Unknown]
  - Vaginal disorder [Unknown]
  - Pruritus [Recovered/Resolved]
  - Urticaria [Unknown]
  - Rash macular [Unknown]
  - Burning sensation [Unknown]
  - Malaise [Unknown]
  - Hypertension [Unknown]
  - Pharyngeal oedema [Unknown]
  - Insomnia [Unknown]
  - Thirst [Unknown]
  - Rash generalised [Unknown]
